FAERS Safety Report 6859207-6 (Version None)
Quarter: 2010Q3

REPORT INFORMATION
  Report Type: 
  Country: None (occurrence: None)
  Receive Date: 20100719
  Receipt Date: 20080219
  Transmission Date: 20110219
  Serious: No
  Sender: FDA-Public Use
  Company Number: US-PFIZER INC-2008017630

PATIENT
  Sex: Female
  Weight: 77.3 kg

DRUGS (5)
  1. CHANTIX [Suspect]
     Indication: SMOKING CESSATION THERAPY
     Dates: start: 20080209
  2. AVANDIA [Concomitant]
  3. GLUCOPHAGE [Concomitant]
  4. BYETTA [Concomitant]
  5. ADDERALL 10 [Concomitant]

REACTIONS (1)
  - ABDOMINAL PAIN UPPER [None]
